FAERS Safety Report 7951830-0 (Version None)
Quarter: 2011Q4

REPORT INFORMATION
  Report Type: 
  Country: None (occurrence: None)
  Receive Date: 20111201
  Receipt Date: 20111128
  Transmission Date: 20120403
  Serious: Yes (Other)
  Sender: FDA-Public Use
  Company Number: FR-PFIZER INC-2011289481

PATIENT
  Age: 70 Year
  Sex: Male

DRUGS (1)
  1. SOMAVERT [Suspect]
     Dosage: 200 MG, 1X/DAY
     Dates: start: 20060101

REACTIONS (2)
  - INCORRECT DOSE ADMINISTERED [None]
  - PLATELET COUNT INCREASED [None]
